FAERS Safety Report 5090449-9 (Version None)
Quarter: 2006Q3

REPORT INFORMATION
  Report Type: 
  Country: None (occurrence: None)
  Receive Date: 20060828
  Receipt Date: 20060505
  Transmission Date: 20061208
  Serious: No
  Sender: FDA-Public Use
  Company Number: US-GLAXOSMITHKLINE-A0604518A

PATIENT
  Age: 72 Year
  Sex: Female

DRUGS (3)
  1. WELLBUTRIN XL [Suspect]
     Indication: DRUG USE FOR UNKNOWN INDICATION
     Dosage: 125MG PER DAY
     Route: 048
     Dates: start: 20060416, end: 20060430
  2. SYNTHROID [Concomitant]
  3. HORMONE [Concomitant]

REACTIONS (2)
  - ANXIETY [None]
  - PANIC REACTION [None]
